FAERS Safety Report 13103232 (Version 1)
Quarter: 2017Q1

REPORT INFORMATION
  Report Type: Spontaneous
  Country: US (occurrence: US)
  Receive Date: 20170110
  Receipt Date: 20170110
  Transmission Date: 20170428
  Serious: No
  Sender: FDA-Public Use
  Company Number: US-AMGEN-USASP2017001413

PATIENT
  Age: 53 Year
  Sex: Female

DRUGS (6)
  1. FOLIC ACID. [Concomitant]
     Active Substance: FOLIC ACID
     Dosage: UNK
  2. OMEGA 3 ACID ETHYL ESTERS [Concomitant]
     Active Substance: OMEGA-3-ACID ETHYL ESTERS
     Dosage: UNK
  3. ACTIGALL [Concomitant]
     Active Substance: URSODIOL
     Dosage: UNK
  4. TURMERIC [Concomitant]
     Active Substance: TURMERIC
     Dosage: UNK
  5. ENBREL [Suspect]
     Active Substance: ETANERCEPT
     Indication: RHEUMATOID ARTHRITIS
     Dosage: 40 MG, Q2WK
     Route: 058
  6. NAPROXEN. [Concomitant]
     Active Substance: NAPROXEN
     Dosage: UNK

REACTIONS (5)
  - Off label use [Unknown]
  - Musculoskeletal discomfort [Unknown]
  - Arthralgia [Unknown]
  - Joint range of motion decreased [Unknown]
  - Musculoskeletal pain [Unknown]
